FAERS Safety Report 4687242-5 (Version None)
Quarter: 2005Q2

REPORT INFORMATION
  Report Type: 
  Country: None (occurrence: None)
  Receive Date: 20050606
  Receipt Date: 20050525
  Transmission Date: 20051028
  Serious: Yes (Hospitalization)
  Sender: FDA-Public Use
  Company Number: 2005068530

PATIENT
  Age: 62 Year
  Sex: Male
  Weight: 76 kg

DRUGS (4)
  1. CAMPTOSAR [Suspect]
     Indication: COLORECTAL CANCER METASTATIC
     Dosage: 80 MG/M*2
     Dates: end: 20050411
  2. FLUOROURACIL [Concomitant]
  3. FOLINIC AICD (FOLINIC ACID) [Concomitant]
  4. OXALIPLATIN (OXALIPLATIN) [Concomitant]

REACTIONS (3)
  - ANAEMIA HAEMOLYTIC AUTOIMMUNE [None]
  - GENERAL PHYSICAL CONDITION ABNORMAL [None]
  - JAUNDICE [None]
